FAERS Safety Report 20219310 (Version 1)
Quarter: 2021Q4

REPORT INFORMATION
  Report Type: Spontaneous
  Country: DE (occurrence: DE)
  Receive Date: 20211222
  Receipt Date: 20211222
  Transmission Date: 20220303
  Serious: Yes (Hospitalization)
  Sender: FDA-Public Use
  Company Number: DE-ADRED-07307-01

PATIENT
  Age: 54 Year
  Sex: Male
  Weight: 104 kg

DRUGS (1)
  1. XARELTO [Suspect]
     Active Substance: RIVAROXABAN
     Indication: Product used for unknown indication
     Dosage: NK, TABLETTEN
     Route: 048

REACTIONS (2)
  - Swelling [Unknown]
  - Haematoma [Unknown]

NARRATIVE: CASE EVENT DATE: 20210219
